FAERS Safety Report 6742468-1 (Version None)
Quarter: 2010Q2

REPORT INFORMATION
  Report Type: 
  Country: None (occurrence: None)
  Receive Date: 20100526
  Receipt Date: 20100512
  Transmission Date: 20101027
  Serious: Yes (Other)
  Sender: FDA-Public Use
  Company Number: NO-WATSON-2010-07013

PATIENT
  Sex: Male

DRUGS (6)
  1. SIMVASTATIN (WATSON LABORATORIES) [Suspect]
     Indication: DRUG USE FOR UNKNOWN INDICATION
     Dosage: 20 MG, DAILY FOR A LONG TIME
     Route: 048
     Dates: end: 20091001
  2. ANTABUSE [Suspect]
     Indication: ALCOHOL ABUSE
     Dosage: 200 MG, DAILY
     Route: 048
     Dates: start: 20080601, end: 20091007
  3. ZESTRIL [Concomitant]
     Indication: HYPERTENSION
     Dosage: USED FOR A LONG TIME
     Route: 048
     Dates: end: 20100201
  4. LEVOTHYROXINE SODIUM [Concomitant]
     Indication: HYPOTHYROIDISM
     Dosage: 50 MCG, DAILY, USED FOR A LONG TIME
     Route: 048
  5. ALBYL-E [Concomitant]
     Indication: DRUG USE FOR UNKNOWN INDICATION
     Dosage: 75 MG DAILY, USED FOR A LONG TIME
     Route: 048
  6. PROSCAR [Concomitant]
     Indication: DYSURIA
     Dosage: USED FOR A LONG TIME
     Route: 048

REACTIONS (1)
  - COGNITIVE DISORDER [None]
